FAERS Safety Report 8179606-2 (Version None)
Quarter: 2012Q1

REPORT INFORMATION
  Report Type: 
  Country: None (occurrence: None)
  Receive Date: 20120229
  Receipt Date: 20120220
  Transmission Date: 20120608
  Serious: Yes (Death)
  Sender: FDA-Public Use
  Company Number: 2012SP000064

PATIENT
  Age: 53 Year
  Sex: Male
  Weight: 65.318 kg

DRUGS (5)
  1. VICTRELIS [Suspect]
     Indication: PRODUCT USED FOR UNKNOWN INDICATION
     Dosage: 800 MG, TID
     Dates: start: 20111106
  2. PEGASYS [Suspect]
     Indication: PRODUCT USED FOR UNKNOWN INDICATION
     Dosage: 180 MCG, QW, SC
     Route: 058
  3. VICODIN [Concomitant]
  4. ACETAMINOPHEN AND HYDROCODONE BITARTRATE [Concomitant]
  5. RIBAVIRIN [Suspect]
     Indication: PRODUCT USED FOR UNKNOWN INDICATION
     Dosage: BID, PO
     Route: 048

REACTIONS (1)
  - GENERAL PHYSICAL HEALTH DETERIORATION [None]
